FAERS Safety Report 6839300-4 (Version None)
Quarter: 2010Q3

REPORT INFORMATION
  Report Type: 
  Country: None (occurrence: None)
  Receive Date: 20100714
  Receipt Date: 20100630
  Transmission Date: 20110219
  Serious: Yes (Other)
  Sender: FDA-Public Use
  Company Number: PHHY2010US40579

PATIENT
  Sex: Male

DRUGS (1)
  1. EXJADE [Suspect]
     Dosage: 1625 MG, QD
     Route: 048

REACTIONS (2)
  - ANAEMIA [None]
  - RENAL FAILURE ACUTE [None]
